FAERS Safety Report 9515684 (Version 4)
Quarter: 2013Q4

REPORT INFORMATION
  Report Type: Spontaneous
  Country: US (occurrence: US)
  Receive Date: 20130911
  Receipt Date: 20131120
  Transmission Date: 20140711
  Serious: Yes (Death)
  Sender: FDA-Public Use
  Company Number: US-PFIZER INC-2013258002

PATIENT
  Age: 81 Year
  Sex: Male
  Weight: 68.1 kg

DRUGS (19)
  1. XALKORI [Suspect]
     Indication: NON-SMALL CELL LUNG CANCER METASTATIC
     Dosage: 250 MG, 2X/DAY
     Route: 048
     Dates: start: 20130822
  2. ALPRAZOLAM [Concomitant]
     Dosage: 0.5 MG, 4X/DAY
     Route: 048
  3. TESSALON PERLE [Concomitant]
     Dosage: 200 MG, 3X/DAY
     Route: 048
  4. WELLBUTRIN [Concomitant]
     Indication: DEPRESSION
     Dosage: 100 MG, DAILY
     Route: 048
  5. BENADRYL [Concomitant]
     Dosage: 25 MG, 1X/DAY (AT BEDTIME)
     Route: 048
  6. DOCUSATE SODIUM [Concomitant]
     Dosage: 2 DF (2 TABS) , 2X/DAY
     Route: 048
  7. NEURONTIN [Concomitant]
     Dosage: 300 MG, 3X/DAY
     Route: 048
  8. GLIPIZIDE [Concomitant]
     Dosage: 2.5 MG, DAILY
     Route: 048
  9. MUCINEX [Concomitant]
     Dosage: 600 MG, 2X/DAY
     Route: 048
  10. LIDODERM PATCH [Concomitant]
     Dosage: 2 DF (2 PATCHES), DAILY
     Route: 061
  11. LISINOPRIL [Concomitant]
     Dosage: 20 MG, DAILY
     Route: 048
  12. METFORMIN [Concomitant]
     Dosage: 1000 MG, 2X/DAY
     Route: 048
  13. REMERON [Concomitant]
     Dosage: 7.5 MG, 1X/DAY (AT BEDTIME)
     Route: 048
  14. MORPHINE [Concomitant]
     Dosage: 15 MG, 2X/DAY (EVERY 12 HOURS)
     Route: 048
  15. ROXANOL [Concomitant]
     Indication: PAIN
     Dosage: 5 MG, EVERY 2 HOURS. AS NEEDED
     Route: 048
  16. ZOFRAN [Concomitant]
     Indication: NAUSEA
     Dosage: 4 MG, EVERY  8 HOURS. AS NEEDED
  17. ZOFRAN [Concomitant]
     Indication: VOMITING
  18. ATIVAN [Concomitant]
     Indication: ANXIETY
  19. DECADRON [Concomitant]

REACTIONS (3)
  - Death [Fatal]
  - Malnutrition [Unknown]
  - Asthenia [Unknown]
